FAERS Safety Report 4718683-5 (Version None)
Quarter: 2005Q3

REPORT INFORMATION
  Report Type: 
  Country: None (occurrence: None)
  Receive Date: 20050719
  Receipt Date: 20050708
  Transmission Date: 20060218
  Serious: Yes (Hospitalization)
  Sender: FDA-Public Use
  Company Number: COV2-2005-00116

PATIENT
  Age: 65 Year
  Sex: Male
  Weight: 73 kg

DRUGS (5)
  1. FOSRENOL [Suspect]
     Indication: HYPERPHOSPHATAEMIA
     Dosage: 750 MG, 3X/DAY:TID, ORAL
     Route: 048
     Dates: start: 20050425, end: 20050703
  2. ALLOPURINOL [Suspect]
     Dosage: 100 MG, 1X/DAY; QD, ORAL
     Route: 048
     Dates: start: 20030101
  3. LASIX [Concomitant]
  4. DILTIAZEM HYDROCHLORIDE [Concomitant]
  5. COREG [Concomitant]

REACTIONS (5)
  - ANOREXIA [None]
  - BLOOD CREATININE INCREASED [None]
  - CONSTIPATION [None]
  - NAUSEA [None]
  - VOMITING [None]
